FAERS Safety Report 9199005 (Version 3)
Quarter: 2013Q2

REPORT INFORMATION
  Report Type: Spontaneous
  Country: US (occurrence: None)
  Receive Date: 20130325
  Receipt Date: 20130401
  Transmission Date: 20140414
  Serious: No
  Sender: FDA-Public Use
  Company Number: 2013US-004591

PATIENT
  Age: 46 Year
  Sex: Female
  Weight: 70 kg

DRUGS (5)
  1. OMONTYS (PEGINESATIDE) SOLUTION FOR INJECTION [Suspect]
     Indication: NEPHROGENIC ANAEMIA
     Dosage: 6 MG, Q 4 WEEKS, INTRAVENOUS
     Route: 042
     Dates: start: 20130212, end: 20130212
  2. EPOGEN [Concomitant]
  3. HEPARIN (HEPARIN) [Concomitant]
  4. ZEMPLAR (PARICALCITOL) [Concomitant]
  5. TYLENOL (PARACETAMOL) [Concomitant]

REACTIONS (3)
  - Pruritus generalised [None]
  - Rash generalised [None]
  - Drug hypersensitivity [None]
